FAERS Safety Report 6238687-3 (Version None)
Quarter: 2009Q2

REPORT INFORMATION
  Report Type: 
  Country: None (occurrence: None)
  Receive Date: 20090622
  Receipt Date: 20090609
  Transmission Date: 20091009
  Serious: Yes (Hospitalization, Other)
  Sender: FDA-Public Use
  Company Number: US-ELI_LILLY_AND_COMPANY-US200610001538

PATIENT
  Sex: Male
  Weight: 126.98 kg

DRUGS (10)
  1. ZYPREXA [Suspect]
     Indication: BIPOLAR DISORDER
     Dosage: 15 MG, UNK
     Dates: start: 19980101, end: 20060601
  2. FLUOXETINE                              /N/A/ [Concomitant]
     Dates: start: 20000101, end: 20010101
  3. KLONOPIN [Concomitant]
  4. LAMICTAL [Concomitant]
     Dosage: 25 MG, DAILY (1/D)
  5. ELAVIL [Concomitant]
  6. LITHIUM                            /00033701/ [Concomitant]
     Indication: BIPOLAR DISORDER
     Dosage: 1 D/F, UNK
  7. LITHIUM                            /00033701/ [Concomitant]
     Dosage: 1 D/F, UNK
     Dates: start: 20050906
  8. PAXIL [Concomitant]
  9. PROZAC                             /00724401/ [Concomitant]
     Dosage: 20 MG, 3/D
  10. TRILAFON [Concomitant]

REACTIONS (22)
  - BLOOD TRIGLYCERIDES INCREASED [None]
  - CELLULITIS [None]
  - COMA [None]
  - DIABETES MELLITUS [None]
  - DIABETIC COMA [None]
  - ENURESIS [None]
  - ERECTILE DYSFUNCTION [None]
  - FATIGUE [None]
  - HYPERHIDROSIS [None]
  - HYPERLIPIDAEMIA [None]
  - HYPERTENSION [None]
  - HYPOAESTHESIA [None]
  - METABOLIC DISORDER [None]
  - MUSCLE SPASMS [None]
  - NEUROPATHY PERIPHERAL [None]
  - OBESITY [None]
  - PERONEAL NERVE PALSY [None]
  - SEPSIS [None]
  - SKIN ULCER [None]
  - STAPHYLOCOCCAL INFECTION [None]
  - URINARY TRACT INFECTION [None]
  - VERY LOW DENSITY LIPOPROTEIN INCREASED [None]
